FAERS Safety Report 4381889-1 (Version None)
Quarter: 2004Q2

REPORT INFORMATION
  Report Type: 
  Country: None (occurrence: None)
  Receive Date: 20040615
  Receipt Date: 20040603
  Transmission Date: 20050107
  Serious: Yes (Hospitalization)
  Sender: FDA-Public Use
  Company Number: 04P-056-0262745-00

PATIENT
  Age: 16 Year
  Sex: Female

DRUGS (4)
  1. DEPAKOTE [Suspect]
     Dosage: 1000 MG, 1 IN 1 D, PER ORAL
     Route: 048
     Dates: start: 20040301
  2. CLORAZEPATE DIPOTASSIUM [Suspect]
     Dosage: 30 MG, 1 IN 1 D, PER ORAL
  3. RISPERIDONE [Suspect]
     Dosage: 3.5 MG, 1 IN 1 D, PER ORAL
     Route: 048
  4. LEVOTHYROXINE SODIUM [Suspect]
     Indication: HYPOTHYROIDISM
     Dosage: 100 MCG, 1 IN 1 D, PER ORAL
     Route: 048

REACTIONS (3)
  - FALL [None]
  - HYPOTENSION [None]
  - MALAISE [None]
